FAERS Safety Report 4503711-2 (Version None)
Quarter: 2004Q4

REPORT INFORMATION
  Report Type: 
  Country: None (occurrence: None)
  Receive Date: 20041115
  Receipt Date: 20041102
  Transmission Date: 20050328
  Serious: Yes (Hospitalization, Other)
  Sender: FDA-Public Use
  Company Number: HQWYE384911NOV04

PATIENT
  Age: 25 Year
  Sex: Female

DRUGS (9)
  1. MINOCYCLINE HCL [Suspect]
     Indication: PNEUMONIA MYCOPLASMAL
     Dosage: 300 MG DAILY ORAL
     Route: 048
     Dates: start: 20040129, end: 20040224
  2. MODACIN (CEFTAZIDIME) [Concomitant]
  3. TOMIRON (CEFTERAM PIVOXIL) [Concomitant]
  4. TRANSAMIN (TRANEXAMIC ACID) [Concomitant]
  5. CALONAL (PARACETAMOL) [Concomitant]
  6. MUCOSOLVAN (AMBROXOL HYDROCHLORIDE) [Concomitant]
  7. PREDNISOLONE [Concomitant]
  8. ENALAPRIL MALEATE [Concomitant]
  9. WARFARIN SODIUM [Concomitant]

REACTIONS (4)
  - BENIGN INTRACRANIAL HYPERTENSION [None]
  - INTRAOCULAR PRESSURE INCREASED [None]
  - PAPILLOEDEMA [None]
  - PHOTOSENSITIVITY REACTION [None]
